FAERS Safety Report 4558088-3 (Version None)
Quarter: 2005Q1

REPORT INFORMATION
  Report Type: 
  Country: None (occurrence: None)
  Receive Date: 20050121
  Receipt Date: 20041013
  Transmission Date: 20050727
  Serious: Yes (Other)
  Sender: FDA-Public Use
  Company Number: US-BRISTOL-MYERS SQUIBB COMPANY-12731469

PATIENT
  Age: 40 Year
  Sex: Female
  Weight: 74 kg

DRUGS (8)
  1. SERZONE [Suspect]
     Dosage: 50MG BID THEN INCREASED TO 100MG BID AND 150MG BID
     Route: 048
     Dates: start: 20001206, end: 20020401
  2. CLONAZEPAM [Suspect]
  3. ALCOHOL [Suspect]
  4. KLONOPIN [Concomitant]
  5. EFFEXOR [Concomitant]
  6. RISPERDAL [Concomitant]
  7. DALMANE [Concomitant]
  8. PREMARIN [Concomitant]
     Indication: DYSMENORRHOEA

REACTIONS (4)
  - ALANINE AMINOTRANSFERASE INCREASED [None]
  - ASPARTATE AMINOTRANSFERASE INCREASED [None]
  - SUICIDAL IDEATION [None]
  - SUICIDE ATTEMPT [None]
